FAERS Safety Report 11926232 (Version 2)
Quarter: 2016Q1

REPORT INFORMATION
  Report Type: Spontaneous
  Country: CA (occurrence: CA)
  Receive Date: 20160119
  Receipt Date: 20160206
  Transmission Date: 20160526
  Serious: Yes (Other)
  Sender: FDA-Public Use
  Company Number: CA-ACCORD-037079

PATIENT
  Age: 52 Year
  Sex: Male

DRUGS (8)
  1. CYCLOPHOSPHAMIDE/CYCLOPHOSPHAMIDE MONOHYDRATE [Concomitant]
     Indication: B-CELL LYMPHOMA
  2. RITUXIMAB [Concomitant]
     Active Substance: RITUXIMAB
     Indication: B-CELL LYMPHOMA
  3. METHOTREXATE [Suspect]
     Active Substance: METHOTREXATE
     Indication: B-CELL LYMPHOMA
     Dosage: 1.20 G PER SQUARE METER OF BODY-SURFACE AREA OVER A 1-HOUR PERIOD, FOLLOWED BY 0.24 G/M^2 OVER 24 HR
     Route: 042
  4. VINCRISTINE [Concomitant]
     Active Substance: VINCRISTINE
     Indication: B-CELL LYMPHOMA
  5. CYTARABINE/CYTARABINE HYDROCHLORIDE/CYTARABINE OCFOSFATE [Concomitant]
     Indication: B-CELL LYMPHOMA
  6. DEXAMETHASONE. [Concomitant]
     Active Substance: DEXAMETHASONE
     Indication: B-CELL LYMPHOMA
  7. FOLINIC ACID [Concomitant]
     Active Substance: LEUCOVORIN
     Indication: B-CELL LYMPHOMA
  8. DOXORUBICIN/DOXORUBICIN HYDROCHLORIDE [Concomitant]
     Indication: B-CELL LYMPHOMA

REACTIONS (2)
  - Acute kidney injury [Unknown]
  - Crystal nephropathy [Unknown]
